FAERS Safety Report 6613865-X (Version None)
Quarter: 2010Q1

REPORT INFORMATION
  Report Type: 
  Country: None (occurrence: None)
  Receive Date: 20100304
  Receipt Date: 20100301
  Transmission Date: 20100710
  Serious: Yes (Hospitalization)
  Sender: FDA-Public Use
  Company Number: A0730996A

PATIENT
  Age: 48 Year
  Sex: Male
  Weight: 77.3 kg

DRUGS (7)
  1. AVANDIA [Suspect]
     Dosage: 8MG PER DAY
     Route: 048
     Dates: start: 20050505, end: 20070201
  2. LIPITOR [Concomitant]
  3. METFORMIN HYDROCHLORIDE [Concomitant]
  4. AMARYL [Concomitant]
  5. INSULIN [Concomitant]
  6. TYLENOL-500 [Concomitant]
  7. XANAX [Concomitant]

REACTIONS (2)
  - CEREBROVASCULAR ACCIDENT [None]
  - ISCHAEMIC STROKE [None]
